FAERS Safety Report 9419748 (Version 2)
Quarter: 2013Q3

REPORT INFORMATION
  Report Type: Report from Study
  Country: FR (occurrence: FR)
  Receive Date: 20130725
  Receipt Date: 20130814
  Transmission Date: 20140515
  Serious: Yes (Hospitalization)
  Sender: FDA-Public Use
  Company Number: FR-PFIZER INC-2011235036

PATIENT
  Age: 30 Year
  Sex: Male

DRUGS (2)
  1. CYTARABINE [Suspect]
     Indication: ACUTE MYELOID LEUKAEMIA
     Dosage: 1750 MG, 2X/DAY
     Route: 042
     Dates: start: 20101227, end: 20101231
  2. MITOXANTRONE [Suspect]
     Indication: ACUTE MYELOID LEUKAEMIA
     Dosage: 21 MG, 1X/DAY
     Route: 042
     Dates: start: 20101227, end: 20101228

REACTIONS (1)
  - Septic shock [Recovered/Resolved]
